FAERS Safety Report 17214053 (Version 2)
Quarter: 2022Q2

REPORT INFORMATION
  Report Type: Spontaneous
  Country: US (occurrence: US)
  Receive Date: 20191230
  Receipt Date: 20220503
  Transmission Date: 20220721
  Serious: No
  Sender: FDA-Public Use
  Company Number: US-PFIZER INC-2018385367

PATIENT
  Age: 67 Year
  Sex: Female
  Weight: 115 kg

DRUGS (1)
  1. AROMASIN [Suspect]
     Active Substance: EXEMESTANE
     Indication: Breast cancer
     Dosage: 25 MG, UNK

REACTIONS (2)
  - Malaise [Unknown]
  - Product dose omission issue [Unknown]
